FAERS Safety Report 23068406 (Version 1)
Quarter: 2023Q4

REPORT INFORMATION
  Report Type: Spontaneous
  Country: US (occurrence: None)
  Receive Date: 20231016
  Receipt Date: 20231016
  Transmission Date: 20240110
  Serious: No
  Sender: FDA-Public Use
  Company Number: US-ARIS GLOBAL-ADM202302-000602

PATIENT
  Age: 69 Year
  Sex: Female

DRUGS (17)
  1. GOCOVRI [Suspect]
     Active Substance: AMANTADINE
     Indication: Extrapyramidal disorder
     Dosage: NOT PROVIDED
     Route: 048
     Dates: start: 20221119, end: 20230210
  2. GOCOVRI [Suspect]
     Active Substance: AMANTADINE
     Indication: Movement disorder
  3. GOCOVRI [Suspect]
     Active Substance: AMANTADINE
     Indication: Parkinson^s disease
  4. FENOFIBRATE [Concomitant]
     Active Substance: FENOFIBRATE
     Dosage: NOT PROVIDED
  5. FLUTICASONE [Concomitant]
     Active Substance: FLUTICASONE
     Dosage: NOT PROVIDED
  6. GABAPENTIN [Concomitant]
     Active Substance: GABAPENTIN
     Dosage: NOT PROVIDED
  7. LORAZEPAM [Concomitant]
     Active Substance: LORAZEPAM
     Dosage: NOT PROVIDED
  8. LOSARTAN [Concomitant]
     Active Substance: LOSARTAN
     Dosage: NOT PROVIDED
  9. METFORMIN [Concomitant]
     Active Substance: METFORMIN HYDROCHLORIDE
     Dosage: NOT PROVIDED
  10. METOPROLOL SUCCINATE [Concomitant]
     Active Substance: METOPROLOL SUCCINATE
     Dosage: NOT PROVIDED
  11. MIRAPEX [Concomitant]
     Active Substance: PRAMIPEXOLE DIHYDROCHLORIDE
     Dosage: NOT PROVIDED
  12. OMEPRAZOLE [Concomitant]
     Active Substance: OMEPRAZOLE
     Dosage: NOT PROVIDED
  13. PHENAZOPYRIDINE [Concomitant]
     Active Substance: PHENAZOPYRIDINE
     Dosage: NOT PROVIDED
  14. STALEVO [Concomitant]
     Active Substance: CARBIDOPA\ENTACAPONE\LEVODOPA
     Dosage: NOT PROVIDED
  15. TIZANIDINE [Concomitant]
     Active Substance: TIZANIDINE
     Dosage: NOT PROVIDED
  16. VITAMIN B12 [Concomitant]
     Active Substance: CYANOCOBALAMIN
     Dosage: NOT PROVIDED
  17. VITAMIN D3 [Concomitant]
     Active Substance: CHOLECALCIFEROL
     Dosage: NOT PROVIDED

REACTIONS (2)
  - Dyskinesia [Recovered/Resolved]
  - Nightmare [Recovered/Resolved]

NARRATIVE: CASE EVENT DATE: 20230110
